FAERS Safety Report 21166273 (Version 1)
Quarter: 2022Q3

REPORT INFORMATION
  Report Type: Spontaneous
  Country: US (occurrence: None)
  Receive Date: 20220802
  Receipt Date: 20220802
  Transmission Date: 20221026
  Serious: Yes (Life-Threatening, Hospitalization, Disabling)
  Sender: FDA-Public Use
  Company Number: None

PATIENT
  Age: 31 Year
  Sex: Male
  Weight: 76.5 kg

DRUGS (3)
  1. DEPAKOTE [Suspect]
     Active Substance: DIVALPROEX SODIUM
     Indication: Epilepsy
     Dosage: OTHER ROUTE : FEEDING PEG / TUBE;?
     Route: 050
  2. DEPAKOTE [Concomitant]
     Active Substance: DIVALPROEX SODIUM
  3. KEPPRA [Concomitant]
     Active Substance: LEVETIRACETAM

REACTIONS (10)
  - Anaphylactic shock [None]
  - Cardiac arrest [None]
  - Hepatotoxicity [None]
  - Ammonia increased [None]
  - Hepatomegaly [None]
  - Hepatic function abnormal [None]
  - Hepatic enzyme increased [None]
  - Troponin increased [None]
  - Product contamination [None]
  - Product formulation issue [None]

NARRATIVE: CASE EVENT DATE: 20200906
